FAERS Safety Report 22018009 (Version 3)
Quarter: 2023Q1

REPORT INFORMATION
  Report Type: Spontaneous
  Country: JP (occurrence: JP)
  Receive Date: 20230221
  Receipt Date: 20230327
  Transmission Date: 20230418
  Serious: Yes (Death, Other)
  Sender: FDA-Public Use
  Company Number: None

PATIENT
  Sex: Female

DRUGS (4)
  1. BOTOX [Suspect]
     Active Substance: ONABOTULINUMTOXINA
     Indication: Muscle spasticity
     Dosage: 30 UNITS, SINGLE
     Route: 030
     Dates: start: 20230119, end: 20230119
  2. BOTOX [Suspect]
     Active Substance: ONABOTULINUMTOXINA
     Indication: Muscle spasticity
     Dosage: 390 UNITS, SINGLE
     Route: 030
     Dates: start: 20220929, end: 20220929
  3. BOTOX [Suspect]
     Active Substance: ONABOTULINUMTOXINA
     Indication: Torticollis
     Dosage: UNK, SINGLE
     Route: 030
     Dates: start: 20161013, end: 20161013
  4. BOTOX [Suspect]
     Active Substance: ONABOTULINUMTOXINA
     Indication: Muscle spasticity

REACTIONS (8)
  - Near drowning [Fatal]
  - Drowning [Fatal]
  - Depressed level of consciousness [Not Recovered/Not Resolved]
  - Posture abnormal [Not Recovered/Not Resolved]
  - Dropped head syndrome [Not Recovered/Not Resolved]
  - Speech disorder [Unknown]
  - Hypertonia [Not Recovered/Not Resolved]
  - Gait disturbance [Not Recovered/Not Resolved]

NARRATIVE: CASE EVENT DATE: 20220101
